FAERS Safety Report 7961517-6 (Version None)
Quarter: 2011Q4

REPORT INFORMATION
  Report Type: 
  Country: None (occurrence: None)
  Receive Date: 20111207
  Receipt Date: 20111129
  Transmission Date: 20120403
  Serious: Yes (Other)
  Sender: FDA-Public Use
  Company Number: DE-ASTELLAS-2011US007771

PATIENT
  Sex: Male

DRUGS (4)
  1. METOCLOPRAMIDE [Concomitant]
     Indication: PRODUCT USED FOR UNKNOWN INDICATION
     Dosage: UNK
     Route: 065
  2. TARCEVA [Suspect]
     Indication: PANCREATIC CARCINOMA
     Dosage: 100 MG, UID/QD
     Route: 048
     Dates: start: 20110804
  3. GEMCITABINE HYDROCHLORIDE [Suspect]
     Indication: PANCREATIC CARCINOMA
     Dosage: 1000 MG/M2, 3XWEEKLY
     Route: 042
     Dates: start: 20101027, end: 20111124
  4. VERGENTAN [Concomitant]
     Indication: PROPHYLAXIS OF NAUSEA AND VOMITING
     Dosage: UNK UNK, UNK
     Route: 042
     Dates: start: 20101027

REACTIONS (4)
  - ONYCHOMYCOSIS [None]
  - WOUND INFECTION [None]
  - SECRETION DISCHARGE [None]
  - IMPAIRED HEALING [None]
